FAERS Safety Report 7504134-4 (Version None)
Quarter: 2011Q2

REPORT INFORMATION
  Report Type: 
  Country: None (occurrence: None)
  Receive Date: 20110524
  Receipt Date: 20110524
  Transmission Date: 20111010
  Serious: Yes (Life-Threatening, Disabling, Other)
  Sender: FDA-Public Use
  Company Number: None

PATIENT
  Sex: Female
  Weight: 136.0791 kg

DRUGS (2)
  1. METOPROLOL SUCCINATE [Suspect]
     Indication: DYSPNOEA
     Dosage: 250 MG 1 A DAY AFTER ASSAULT + FORCIBLE INJECTION
  2. METOPROLOL SUCCINATE [Suspect]
     Indication: HEART RATE INCREASED
     Dosage: 250 MG 1 A DAY AFTER ASSAULT + FORCIBLE INJECTION

REACTIONS (14)
  - CHILLS [None]
  - GOUT [None]
  - PYREXIA [None]
  - HAND FRACTURE [None]
  - PRURITUS [None]
  - SWOLLEN TONGUE [None]
  - OEDEMA MOUTH [None]
  - JOINT DISLOCATION [None]
  - MOUTH HAEMORRHAGE [None]
  - LIP SWELLING [None]
  - VICTIM OF CRIME [None]
  - BURNING SENSATION [None]
  - OEDEMA PERIPHERAL [None]
  - ALOPECIA [None]
